FAERS Safety Report 25906272 (Version 1)
Quarter: 2025Q4

REPORT INFORMATION
  Report Type: Spontaneous
  Country: US (occurrence: None)
  Receive Date: 20251009
  Receipt Date: 20251009
  Transmission Date: 20260118
  Serious: Yes (Death)
  Sender: FDA-CTU
  Company Number: None

PATIENT
  Sex: Female

DRUGS (1)
  1. ZEPBOUND [Suspect]
     Active Substance: TIRZEPATIDE
     Indication: Obesity
     Dosage: OTHER QUANTITY : 4 INJECTION(S);?OTHER ROUTE : INJECTION;?
     Route: 050
     Dates: start: 20250820, end: 20250913

REACTIONS (4)
  - Gastrointestinal disorder [None]
  - Cardiac tamponade [None]
  - Aortic dissection [None]
  - Aortic rupture [None]
